FAERS Safety Report 21500104 (Version 1)
Quarter: 2022Q4

REPORT INFORMATION
  Report Type: Spontaneous
  Country: US (occurrence: US)
  Receive Date: 20221024
  Receipt Date: 20221024
  Transmission Date: 20230113
  Serious: No
  Sender: FDA-Public Use
  Company Number: US-HORIZON THERAPEUTICS-HZN-2022-004056

PATIENT

DRUGS (6)
  1. KRYSTEXXA [Suspect]
     Active Substance: PEGLOTICASE
     Indication: Product used for unknown indication
     Dosage: PATIENT WAS ON KRYSTEXXA SEVERAL YEARS AGO WITHOUT IMMUNOMODULATION, BUT HAD A RISE IN SUA AND DISCO
     Route: 065
  2. KRYSTEXXA [Suspect]
     Active Substance: PEGLOTICASE
     Dosage: FIRST INFUSION: HAD HIM START MMF 2 WEEKS BEFORE ADMINISTERING KRSTEXXA AGAIN
     Route: 042
  3. KRYSTEXXA [Suspect]
     Active Substance: PEGLOTICASE
     Dosage: SECOND INFUSION
     Route: 042
  4. KRYSTEXXA [Suspect]
     Active Substance: PEGLOTICASE
     Dosage: THIRD INFUSION
     Route: 042
  5. MYCOPHENOLATE MOFETIL [Concomitant]
     Active Substance: MYCOPHENOLATE MOFETIL
     Indication: Product used for unknown indication
     Dosage: HAD THE PATIENT START MMF 2 WEEKS BEFORE ADMINISTERING KRYSTEXXA AGAIN
     Route: 065
     Dates: start: 2022
  6. MYCOPHENOLATE MOFETIL [Concomitant]
     Active Substance: MYCOPHENOLATE MOFETIL
     Dosage: STOPPED TAKING MMF A WEEK AGO
     Route: 065
     Dates: end: 2022

REACTIONS (3)
  - Therapy non-responder [Unknown]
  - Blood uric acid increased [Unknown]
  - Gout [Unknown]
